FAERS Safety Report 5508450-7 (Version None)
Quarter: 2007Q4

REPORT INFORMATION
  Report Type: 
  Country: None (occurrence: None)
  Receive Date: 20071107
  Receipt Date: 20071029
  Transmission Date: 20080405
  Serious: Yes (Hospitalization)
  Sender: FDA-Public Use
  Company Number: US-JNJFOC-20071007952

PATIENT
  Sex: Female
  Weight: 63.5 kg

DRUGS (3)
  1. DURAGESIC-100 [Suspect]
     Indication: PAIN
     Route: 062
  2. ANTIHYPERTENSIVES [Concomitant]
     Indication: BLOOD PRESSURE
     Route: 048
  3. PREVACID [Concomitant]
     Indication: GASTRIC DISORDER
     Route: 048

REACTIONS (5)
  - BLOOD PRESSURE INADEQUATELY CONTROLLED [None]
  - CARDIAC DISORDER [None]
  - CHEST PAIN [None]
  - MYOCARDIAL INFARCTION [None]
  - WRONG TECHNIQUE IN DRUG USAGE PROCESS [None]
